FAERS Safety Report 7687090-8 (Version None)
Quarter: 2011Q3

REPORT INFORMATION
  Report Type: 
  Country: None (occurrence: None)
  Receive Date: 20110816
  Receipt Date: 20110804
  Transmission Date: 20111222
  Serious: Yes (Hospitalization, Other)
  Sender: FDA-Public Use
  Company Number: IL-SANOFI-AVENTIS-2011SA044073

PATIENT
  Age: 85 Year
  Sex: Male
  Weight: 54 kg

DRUGS (15)
  1. OXYCODONE HCL [Concomitant]
  2. THIAMINE [Concomitant]
  3. FUROSEMIDE [Concomitant]
     Route: 065
  4. FOLEX [Concomitant]
  5. ESCITALOPRAM [Concomitant]
  6. DRONEDARONE HCL [Suspect]
     Indication: ATRIAL FIBRILLATION
     Route: 048
     Dates: start: 20110124
  7. ZODORM [Concomitant]
  8. VITAMIN B-12 [Concomitant]
     Dosage: DOSE:1000 UNIT(S)
  9. SIMAVASTATIN [Concomitant]
     Route: 065
  10. NALOXONE [Concomitant]
  11. OMEPRADEX [Concomitant]
  12. ASPIRIN [Concomitant]
     Route: 065
  13. ENALAPRIL MALEATE [Concomitant]
     Route: 065
  14. CHLORPHENIRAMINE MALEATE [Concomitant]
  15. TRAZODIL [Concomitant]

REACTIONS (5)
  - PNEUMONIA [None]
  - RESPIRATORY TRACT INFECTION [None]
  - CARDIAC FAILURE CONGESTIVE [None]
  - DERMATITIS [None]
  - CARDIAC FAILURE [None]
